FAERS Safety Report 5890006-8 (Version None)
Quarter: 2008Q3

REPORT INFORMATION
  Report Type: 
  Country: None (occurrence: None)
  Receive Date: 20080919
  Receipt Date: 20080909
  Transmission Date: 20090109
  Serious: Yes (Hospitalization, Other)
  Sender: FDA-Public Use
  Company Number: US-PFIZER INC-2008044975

PATIENT
  Sex: Female

DRUGS (6)
  1. CHANTIX [Suspect]
     Indication: SMOKING CESSATION THERAPY
     Route: 048
  2. RISPERDAL [Concomitant]
  3. SEROQUEL [Concomitant]
  4. CONCERTA [Concomitant]
  5. COGENTIN [Concomitant]
  6. DEPAKOTE [Concomitant]

REACTIONS (3)
  - DEPRESSION [None]
  - PNEUMONIA [None]
  - SUICIDAL IDEATION [None]
